FAERS Safety Report 25046717 (Version 2)
Quarter: 2025Q1

REPORT INFORMATION
  Report Type: Spontaneous
  Country: US (occurrence: US)
  Receive Date: 20250306
  Receipt Date: 20250306
  Transmission Date: 20250409
  Serious: No
  Sender: Karo Pharma
  Company Number: US-Karo Pharma-2172327

PATIENT
  Sex: Male

DRUGS (2)
  1. LAMISIL [Suspect]
     Active Substance: TERBINAFINE HYDROCHLORIDE
     Indication: Tinea pedis
     Dates: start: 20250120
  2. TIMOLOL [Concomitant]
     Active Substance: TIMOLOL

REACTIONS (1)
  - Drug ineffective [Unknown]
